FAERS Safety Report 8993161 (Version 5)
Quarter: 2013Q1

REPORT INFORMATION
  Report Type: Spontaneous
  Country: JP (occurrence: JP)
  Receive Date: 20130102
  Receipt Date: 20130220
  Transmission Date: 20140127
  Serious: Yes (Life-Threatening, Other)
  Sender: FDA-Public Use
  Company Number: JP-ABBOTT-12P-087-1028966-00

PATIENT
  Age: 84 Year
  Sex: Female
  Weight: 40.9 kg

DRUGS (8)
  1. HUMIRA [Suspect]
     Indication: RHEUMATOID ARTHRITIS
     Dates: start: 20110423
  2. INFLIXIMAB [Suspect]
     Indication: RHEUMATOID ARTHRITIS
     Route: 041
     Dates: start: 20120131, end: 20120507
  3. RHEUMATREX [Suspect]
     Indication: RHEUMATOID ARTHRITIS
     Dates: start: 2002, end: 20120507
  4. REBAMIPIDE [Concomitant]
     Indication: GASTRITIS
     Route: 048
  5. LANSOPRAZOLE [Concomitant]
     Indication: GASTRITIS
     Route: 048
  6. FOLIC ACID [Concomitant]
     Indication: RHEUMATOID ARTHRITIS
     Route: 048
  7. ALENDRONATE SODIUM [Concomitant]
     Indication: OSTEOPOROSIS
     Route: 048
  8. BEPOTASTINE BESILATE [Concomitant]
     Indication: URTICARIA
     Route: 048

REACTIONS (2)
  - Pulmonary alveolar haemorrhage [Recovered/Resolved]
  - Drug effect incomplete [Unknown]
